FAERS Safety Report 5441255-4 (Version None)
Quarter: 2007Q3

REPORT INFORMATION
  Report Type: 
  Country: None (occurrence: None)
  Receive Date: 20070901
  Receipt Date: 20070823
  Transmission Date: 20080115
  Serious: Yes (Other)
  Sender: FDA-Public Use
  Company Number: US-PFIZER INC-2007071026

PATIENT
  Sex: Female
  Weight: 133.4 kg

DRUGS (9)
  1. LYRICA [Suspect]
     Indication: FIBROMYALGIA
  2. ASPIRIN [Concomitant]
  3. AMARYL [Concomitant]
  4. CLARINEX [Concomitant]
  5. ZOLOFT [Concomitant]
     Dosage: DAILY DOSE:150MG-FREQ:DAILY
  6. LOZOL [Concomitant]
  7. ZESTRIL [Concomitant]
  8. LIPITOR [Concomitant]
  9. ACTOS [Concomitant]

REACTIONS (5)
  - ACTIVITIES OF DAILY LIVING IMPAIRED [None]
  - DEPRESSED LEVEL OF CONSCIOUSNESS [None]
  - GAIT DISTURBANCE [None]
  - MYALGIA [None]
  - SOMNOLENCE [None]
